FAERS Safety Report 4337228-5 (Version None)
Quarter: 2004Q2

REPORT INFORMATION
  Report Type: 
  Country: None (occurrence: None)
  Receive Date: 20040406
  Receipt Date: 20030506
  Transmission Date: 20050107
  Serious: Yes (Other)
  Sender: FDA-Public Use
  Company Number: 200317480BWH

PATIENT
  Age: 57 Year
  Sex: Female
  Weight: 104.3273 kg

DRUGS (4)
  1. ADALAT [Suspect]
     Indication: HYPERTENSION
     Dosage: BID, ORAL
     Route: 048
  2. LOVASTATIN [Concomitant]
  3. HORMONE REPLACEMENT THERAPY [Concomitant]
  4. THYROID MEDICATION [Concomitant]

REACTIONS (1)
  - HEADACHE [None]
